FAERS Safety Report 10182713 (Version 2)
Quarter: 2014Q4

REPORT INFORMATION
  Report Type: Spontaneous
  Country: US (occurrence: None)
  Receive Date: 20140516
  Receipt Date: 20141008
  Transmission Date: 20150528
  Serious: No
  Sender: FDA-Public Use
  Company Number: UNT-2014-000003

PATIENT
  Age: 46 Year
  Sex: Female
  Weight: 95.2 kg

DRUGS (3)
  1. REMODULIN [Suspect]
     Active Substance: TREPROSTINIL
     Indication: COR PULMONALE CHRONIC
     Route: 042
     Dates: start: 20140107
  2. TRACLEER [Concomitant]
     Active Substance: BOSENTAN\BOSENTAN MONOHYDRATE
  3. ADCIRCA [Concomitant]
     Active Substance: TADALAFIL

REACTIONS (4)
  - Medical device complication [None]
  - Device leakage [None]
  - Drug dose omission [None]
  - Catheter site vesicles [None]

NARRATIVE: CASE EVENT DATE: 2014
